FAERS Safety Report 6670851-1 (Version None)
Quarter: 2010Q2

REPORT INFORMATION
  Report Type: 
  Country: None (occurrence: None)
  Receive Date: 20100407
  Receipt Date: 20100329
  Transmission Date: 20101027
  Serious: Yes (Other)
  Sender: FDA-Public Use
  Company Number: US-JNJFOC-20100302582

PATIENT
  Age: 60 Year
  Sex: Male

DRUGS (5)
  1. METHYLPHENIDATE HCL [Suspect]
     Indication: DRUG USE FOR UNKNOWN INDICATION
     Route: 048
  2. METHYLPHENIDATE HCL [Suspect]
     Route: 048
  3. GUANETHIDINE SULFATE [Suspect]
     Indication: DRUG USE FOR UNKNOWN INDICATION
     Route: 065
  4. GUANETHIDINE SULFATE [Suspect]
     Route: 065
  5. HYDROCHLOROTHIAZIDE [Concomitant]
     Indication: DRUG USE FOR UNKNOWN INDICATION
     Dosage: ON ALTERNATE DAYS
     Route: 065

REACTIONS (1)
  - VENTRICULAR TACHYCARDIA [None]
